FAERS Safety Report 21353838 (Version 2)
Quarter: 2022Q4

REPORT INFORMATION
  Report Type: Spontaneous
  Country: IT (occurrence: IT)
  Receive Date: 20220920
  Receipt Date: 20221101
  Transmission Date: 20230112
  Serious: Yes (Other)
  Sender: FDA-Public Use
  Company Number: IT-AMGEN-ITASP2022133350

PATIENT
  Age: 5 Decade

DRUGS (10)
  1. IRINOTECAN [Suspect]
     Active Substance: IRINOTECAN
     Indication: Adenocarcinoma of colon
     Dosage: 180 UNK, (MG/MQ OVER 90 MIN DAY 1)
     Route: 065
     Dates: start: 2020
  2. OXALIPLATIN [Suspect]
     Active Substance: OXALIPLATIN
     Indication: Adenocarcinoma of colon
     Dosage: 85 MILLIGRAM/KILOGRAM  (85 MILLIGRAM/KILOGRAM, (OVER 2 H DAY 1))
     Route: 065
     Dates: start: 2019
  3. FLUOROURACIL [Suspect]
     Active Substance: FLUOROURACIL
     Indication: Adenocarcinoma of colon
     Dosage: 2400 UNK (OVER 48 HRS, 3^-4^ DAY 1, 5)
     Route: 065
     Dates: start: 2019
  4. FLUOROURACIL [Suspect]
     Active Substance: FLUOROURACIL
     Dosage: 2400 UNK(MG/MQ 48 H DAY I EVERY 2 WEEKS)
     Route: 065
     Dates: start: 2020
  5. FLUOROURACIL [Suspect]
     Active Substance: FLUOROURACIL
     Dosage: 400 UNK 9MG/MQ 3^-4^ DAY 1)
     Route: 065
     Dates: start: 2020
  6. PANITUMUMAB [Suspect]
     Active Substance: PANITUMUMAB
     Indication: Adenocarcinoma of colon
     Dosage: 6 MILLIGRAM/KILOGRAM, Q2W  (6 MILLIGRAM/KILOGRAM, Q2WK)
     Route: 065
     Dates: start: 2019
  7. CALCIUM [Suspect]
     Active Substance: CALCIUM
     Indication: Adenocarcinoma of colon
     Dosage: UNK (MG/MQ OVER 2 H DAY 1)
     Route: 065
     Dates: start: 2019
  8. CALCIUM [Suspect]
     Active Substance: CALCIUM
     Dosage: 200 UNK, (MG/MQ OVER 2 H DAY 1-2)
     Route: 065
     Dates: start: 2020
  9. LEVOLEUCOVORIN CALCIUM [Suspect]
     Active Substance: LEVOLEUCOVORIN CALCIUM
     Indication: Adenocarcinoma of colon
     Dosage: UNK (MG/MQ OVER 2 H DAY 1)
     Route: 065
     Dates: start: 2019
  10. LEVOLEUCOVORIN CALCIUM [Suspect]
     Active Substance: LEVOLEUCOVORIN CALCIUM
     Dosage: UNK (200 MG/MQ OVER 2 H DAY 1-2)
     Route: 065
     Dates: start: 2020

REACTIONS (9)
  - Metastases to lymph nodes [Unknown]
  - Adenocarcinoma of colon [Unknown]
  - Metastases to central nervous system [Unknown]
  - Metastases to liver [Unknown]
  - Metastases to lung [Unknown]
  - Drug ineffective [Unknown]
  - Gene mutation [Unknown]
  - General physical health deterioration [Unknown]
  - Diarrhoea [Unknown]
